FAERS Safety Report 4392672-5 (Version None)
Quarter: 2004Q3

REPORT INFORMATION
  Report Type: 
  Country: None (occurrence: None)
  Receive Date: 20040702
  Receipt Date: 20040323
  Transmission Date: 20050211
  Serious: Yes (Other)
  Sender: FDA-Public Use
  Company Number: 2004UW05622

PATIENT
  Age: 47 Year
  Sex: Male

DRUGS (5)
  1. CRESTOR [Suspect]
     Dosage: 10 MG DAILY PO
     Route: 048
  2. OMEPRAZOLE [Suspect]
     Dosage: 40 MG DAILY PO
     Route: 048
  3. LOPID [Suspect]
     Dosage: 600 MG BID
  4. DYAZIDE [Suspect]
     Dosage: 37.5  DF DAILY
  5. ENALAPRIL MALEATE [Suspect]
     Dosage: 20 MG DAILY

REACTIONS (2)
  - HEPATIC ENZYME INCREASED [None]
  - HEPATIC PAIN [None]
